FAERS Safety Report 18815006 (Version 1)
Quarter: 2021Q1

REPORT INFORMATION
  Report Type: Spontaneous
  Country: US (occurrence: US)
  Receive Date: 20210129
  Receipt Date: 20210129
  Transmission Date: 20210419
  Serious: Yes (Life-Threatening, Disabling)
  Sender: FDA-Public Use
  Company Number: None

PATIENT
  Age: 53 Year
  Sex: Female
  Weight: 90 kg

DRUGS (6)
  1. VITAMIN C [Concomitant]
     Active Substance: ASCORBIC ACID
  2. VITAMIN D [Concomitant]
     Active Substance: VITAMIN D NOS
  3. CLINDAMYCIN MFG AUROBINDO [Suspect]
     Active Substance: CLINDAMYCIN
     Indication: TOOTH EXTRACTION
     Dosage: ?          QUANTITY:21 CAPSULE(S);?
     Route: 048
  4. ZINC. [Concomitant]
     Active Substance: ZINC
  5. LANTUS [Concomitant]
     Active Substance: INSULIN GLARGINE
  6. NOVA LOG [Concomitant]

REACTIONS (4)
  - Pyrexia [None]
  - Feeling hot [None]
  - Rash [None]
  - Rash pruritic [None]

NARRATIVE: CASE EVENT DATE: 20210126
